FAERS Safety Report 12959874 (Version 1)
Quarter: 2016Q4

REPORT INFORMATION
  Report Type: Spontaneous
  Country: US (occurrence: US)
  Receive Date: 20161121
  Receipt Date: 20161121
  Transmission Date: 20170207
  Serious: No
  Sender: FDA-Public Use
  Company Number: US-GLAXOSMITHKLINE-US2016GSK171365

PATIENT
  Age: 46 Year
  Sex: Female

DRUGS (2)
  1. TANZEUM [Suspect]
     Active Substance: ALBIGLUTIDE
     Indication: WEIGHT DECREASED
     Dosage: 50 MG, WE
     Route: 042
  2. TANZEUM [Suspect]
     Active Substance: ALBIGLUTIDE
     Indication: TYPE 1 DIABETES MELLITUS
     Dosage: 30 MG, UNK
     Route: 042
     Dates: start: 20161003

REACTIONS (7)
  - Decreased appetite [Unknown]
  - Product use issue [Unknown]
  - Injection site hypersensitivity [Unknown]
  - Injection site pruritus [Unknown]
  - Injection site bruising [Unknown]
  - Therapeutic response unexpected [Unknown]
  - Injection site erythema [Unknown]

NARRATIVE: CASE EVENT DATE: 20161107
